FAERS Safety Report 5031512-8 (Version None)
Quarter: 2006Q2

REPORT INFORMATION
  Report Type: 
  Country: None (occurrence: None)
  Receive Date: 20060505
  Receipt Date: 20050415
  Transmission Date: 20061013
  Serious: Yes (Other)
  Sender: FDA-Public Use
  Company Number: PHEH2005US02272

PATIENT
  Age: 67 Year
  Sex: Female
  Weight: 57.1532 kg

DRUGS (5)
  1. DIOVAN HCT [Suspect]
     Indication: HYPERTENSION
     Dosage: 1 DF QD ORAL
     Route: 048
     Dates: start: 20030612, end: 20050216
  2. ATENOLOL [Concomitant]
  3. NORVASC [Concomitant]
  4. COMBIVENT (IPRAOTROPIUM BROMIDE, SALBUTAMOL) [Concomitant]
  5. ADVAIR (FLUTICASONE PROPIONATE, SALEMTEROL, XINAFOATE) [Concomitant]

REACTIONS (5)
  - ASTHENIA [None]
  - BLOOD SODIUM DECREASED [None]
  - CONFUSIONAL STATE [None]
  - FATIGUE [None]
  - HYPONATRAEMIA [None]
